FAERS Safety Report 9784166 (Version 2)
Quarter: 2014Q1

REPORT INFORMATION
  Report Type: Spontaneous
  Country: US (occurrence: US)
  Receive Date: 20131226
  Receipt Date: 20140130
  Transmission Date: 20141002
  Serious: No
  Sender: FDA-Public Use
  Company Number: US-009507513-1310USA010344

PATIENT
  Age: 55 Year
  Sex: Male

DRUGS (8)
  1. REBETOL [Suspect]
     Indication: HEPATITIS C
     Dosage: 600 MG, QD IN AM
     Route: 048
     Dates: start: 201306, end: 20131011
  2. REBETOL [Suspect]
     Dosage: 400 MG, HS
     Dates: start: 201306, end: 20131011
  3. PEGINTRON [Suspect]
     Indication: HEPATITIS C
     Dosage: 0.5 ML, UNK
     Route: 058
     Dates: start: 201306, end: 20130814
  4. PEGINTRON [Suspect]
     Dosage: 0.4 ML, QW
     Route: 058
     Dates: start: 20130814
  5. VICTRELIS [Suspect]
     Dosage: 4 (20MG) CAPSULES THREE TIMES A DAY
     Dates: start: 20130821
  6. ALBUTEROL [Concomitant]
  7. IBUPROFEN [Concomitant]
  8. NEXIUM [Concomitant]

REACTIONS (5)
  - White blood cell count decreased [Unknown]
  - Haemoglobin decreased [Unknown]
  - Viral load [Unknown]
  - Anaemia [Unknown]
  - Platelet count decreased [Unknown]
